FAERS Safety Report 16447474 (Version 1)
Quarter: 2019Q2

REPORT INFORMATION
  Report Type: Spontaneous
  Country: BE (occurrence: BE)
  Receive Date: 20190619
  Receipt Date: 20190619
  Transmission Date: 20190711
  Serious: Yes (Death)
  Sender: FDA-Public Use
  Company Number: PHHY2019BE139636

PATIENT
  Age: 73 Year
  Sex: Female

DRUGS (3)
  1. XEPLION [Interacting]
     Active Substance: PALIPERIDONE PALMITATE
     Indication: PRODUCT USED FOR UNKNOWN INDICATION
     Dosage: UNK
     Route: 065
  2. RISPERIDONE. [Interacting]
     Active Substance: RISPERIDONE
     Indication: PRODUCT USED FOR UNKNOWN INDICATION
     Route: 065
  3. ALLOPURINOL. [Suspect]
     Active Substance: ALLOPURINOL
     Indication: PRODUCT USED FOR UNKNOWN INDICATION
     Dosage: UNK
     Route: 065

REACTIONS (7)
  - Thrombocytopenia [Fatal]
  - Drug interaction [Fatal]
  - Fall [Fatal]
  - Altered state of consciousness [Fatal]
  - Pancytopenia [Fatal]
  - Cerebral haemorrhage [Fatal]
  - Bone marrow failure [Fatal]
